FAERS Safety Report 13825791 (Version 1)
Quarter: 2017Q3

REPORT INFORMATION
  Report Type: Report from Study
  Country: US (occurrence: US)
  Receive Date: 20170802
  Receipt Date: 20170802
  Transmission Date: 20171127
  Serious: Yes (Hospitalization)
  Sender: FDA-Public Use
  Company Number: US-ACTELION-A-US2017-157441

PATIENT
  Age: 48 Year
  Sex: Male

DRUGS (1)
  1. OPSUMIT [Suspect]
     Active Substance: MACITENTAN
     Indication: PULMONARY ARTERIAL HYPERTENSION
     Dosage: 10 MG, QD
     Route: 048
     Dates: start: 20161223

REACTIONS (5)
  - Chronic obstructive pulmonary disease [Unknown]
  - Haemorrhage [Unknown]
  - Dialysis [Unknown]
  - Anaemia [Unknown]
  - Nephropathy [Unknown]
